FAERS Safety Report 6060249-1 (Version None)
Quarter: 2009Q1

REPORT INFORMATION
  Report Type: 
  Country: None (occurrence: None)
  Receive Date: 20090129
  Receipt Date: 20090119
  Transmission Date: 20090719
  Serious: Yes (Other)
  Sender: FDA-Public Use
  Company Number: 2009AP000251

PATIENT
  Age: 77 Year
  Sex: Female

DRUGS (20)
  1. ALENDRONATE SODIUM [Suspect]
     Indication: OSTEOPOROSIS
     Dosage: 70 MG;PO ; 70 MG;PO
     Route: 048
     Dates: start: 20080601, end: 20081001
  2. ALENDRONATE SODIUM [Suspect]
     Indication: OSTEOPOROSIS
     Dosage: 70 MG;PO ; 70 MG;PO
     Route: 048
     Dates: start: 20081001
  3. AMOXICILLIN (AMOXICILIN) [Concomitant]
  4. CALCIUM CARBONATE (CALCIUM CARBONATE) [Concomitant]
  5. COLECALCIFEROL (COLECALCIFEROL) [Concomitant]
  6. DOCUSATE SODIUM (DOCUSATE SODIUM) [Concomitant]
  7. FLOXACILLIN SODIUM [Concomitant]
  8. FUROSEMIDE (FUROSEMIDE) [Concomitant]
  9. NICORANDIL (NICORANDIL) [Concomitant]
  10. OMEPRAZOLE [Concomitant]
  11. MORPHINE SULFATE INJ [Concomitant]
  12. ACETAMINOPHEN [Concomitant]
  13. PREDNISOLONE [Concomitant]
  14. SALBUTAMOL (SALBUTAMOL) [Concomitant]
  15. SENNA (SENNA) [Concomitant]
  16. FLUTICASONE PROPIONATE [Concomitant]
  17. SALMETEROL XINAFOATE (SALMETEROL XINAFOATE) [Concomitant]
  18. SIMVASTATIN [Concomitant]
  19. TIOTROPIUM BROMIDE (TIOTROPIUM BROMIDE) [Concomitant]
  20. TRIMETHOPRIM [Concomitant]

REACTIONS (4)
  - GASTRITIS [None]
  - HYPERSENSITIVITY [None]
  - MOBILITY DECREASED [None]
  - OESOPHAGITIS [None]
